FAERS Safety Report 4895536-3 (Version None)
Quarter: 2006Q1

REPORT INFORMATION
  Report Type: 
  Country: None (occurrence: None)
  Receive Date: 20060125
  Receipt Date: 20040908
  Transmission Date: 20060701
  Serious: Yes (Death, Life-Threatening)
  Sender: FDA-Public Use
  Company Number: FR_040904718

PATIENT
  Age: 22 Year
  Sex: Female

DRUGS (7)
  1. VANCOMYCIN [Suspect]
     Dosage: 2 G DAY
     Dates: start: 20040424, end: 20040429
  2. FOSCAVIR [Concomitant]
  3. OMEPRAZOLE [Concomitant]
  4. BACTRIM [Concomitant]
  5. CYCLOPHOSPHAMIDE [Concomitant]
  6. EUPANTOL (PANTOPRAZOLE) [Concomitant]
  7. CORTICOSTEROID NOS [Concomitant]

REACTIONS (5)
  - BONE MARROW FAILURE [None]
  - HAEMODYNAMIC INSTABILITY [None]
  - PANCYTOPENIA [None]
  - RESPIRATORY FAILURE [None]
  - TOXIC EPIDERMAL NECROLYSIS [None]
